FAERS Safety Report 8355081-X (Version None)
Quarter: 2012Q2

REPORT INFORMATION
  Report Type: 
  Country: None (occurrence: None)
  Receive Date: 20120511
  Receipt Date: 20120430
  Transmission Date: 20120825
  Serious: Yes (Other)
  Sender: FDA-Public Use
  Company Number: US-JNJFOC-20120501863

PATIENT
  Sex: Female
  Weight: 63.5 kg

DRUGS (2)
  1. ORTHO CYCLEN-28 [Suspect]
     Route: 048
  2. ORTHO CYCLEN-28 [Suspect]
     Indication: ADRENAL INSUFFICIENCY
     Route: 048
     Dates: start: 20020101

REACTIONS (5)
  - CONVULSION [None]
  - BASEDOW'S DISEASE [None]
  - HORMONE LEVEL ABNORMAL [None]
  - ADRENAL DISORDER [None]
  - OFF LABEL USE [None]
